FAERS Safety Report 10686358 (Version 3)
Quarter: 2015Q1

REPORT INFORMATION
  Report Type: Report from Study
  Country: AU (occurrence: AU)
  Receive Date: 20141231
  Receipt Date: 20150305
  Transmission Date: 20150720
  Serious: Yes (Hospitalization, Other)
  Sender: FDA-Public Use
  Company Number: AU-GILEAD-2014-0129270

PATIENT
  Age: 73 Year
  Sex: Male
  Weight: 68.5 kg

DRUGS (22)
  1. FLAGYL [Concomitant]
     Active Substance: METRONIDAZOLE\METRONIDAZOLE HYDROCHLORIDE
     Indication: PROPHYLAXIS
     Dosage: UNK
     Dates: start: 20141124, end: 20141124
  2. PROPOFOL. [Concomitant]
     Active Substance: PROPOFOL
     Indication: GENERAL ANAESTHESIA
     Dosage: UNK
     Dates: start: 20141124, end: 20141124
  3. OXYCODONE [Concomitant]
     Active Substance: OXYCODONE
     Indication: GENERAL ANAESTHESIA
     Dosage: UNK
     Dates: start: 20141124, end: 20141124
  4. CEFAZOLIN [Concomitant]
     Active Substance: CEFAZOLIN
     Indication: INFECTION PROPHYLAXIS
     Dosage: UNK
     Dates: start: 20141124, end: 20141124
  5. METOPROLOL [Concomitant]
     Active Substance: METOPROLOL
     Indication: HYPERTENSION
     Dosage: UNK
     Dates: start: 20141029
  6. HARTMANNS [Concomitant]
     Indication: FLUID REPLACEMENT
     Dosage: UNK
     Dates: start: 20141124, end: 20141124
  7. ARZERRA [Suspect]
     Active Substance: OFATUMUMAB
     Indication: CHRONIC LYMPHOCYTIC LEUKAEMIA
     Route: 065
  8. XARELTO [Concomitant]
     Active Substance: RIVAROXABAN
     Indication: ATRIAL FIBRILLATION
     Dosage: UNK
     Dates: start: 20140102
  9. MIDAZOLAM [Concomitant]
     Active Substance: MIDAZOLAM\MIDAZOLAM HYDROCHLORIDE
     Indication: GENERAL ANAESTHESIA
     Dosage: UNK
     Dates: start: 20141124, end: 20141124
  10. DEXAMETHASONE. [Concomitant]
     Active Substance: DEXAMETHASONE
     Indication: GENERAL ANAESTHESIA
     Dosage: UNK
     Dates: start: 20141124, end: 20141124
  11. GLYCOPYRROLATE                     /00196201/ [Concomitant]
     Active Substance: GLYCOPYRRONIUM
     Indication: GENERAL ANAESTHESIA
     Dosage: UNK
     Dates: start: 20141124, end: 20141124
  12. PARECOXIB [Concomitant]
     Active Substance: PARECOXIB
     Indication: GENERAL ANAESTHESIA
     Dosage: UNK
     Dates: start: 20141124, end: 20141124
  13. ALLOPURINOL. [Concomitant]
     Active Substance: ALLOPURINOL
     Indication: PROPHYLAXIS
     Dosage: UNK
     Dates: start: 20131108
  14. IDELALISIB [Suspect]
     Active Substance: IDELALISIB
     Indication: CHRONIC LYMPHOCYTIC LEUKAEMIA
     Dosage: 150 MG, BID
     Route: 048
     Dates: start: 20131108
  15. ARAMINE [Concomitant]
     Active Substance: METARAMINOL BITARTRATE
     Indication: GENERAL ANAESTHESIA
     Dosage: UNK
     Dates: start: 20141124, end: 20141124
  16. FOSAMAX PLUS D CAL [Concomitant]
     Indication: OSTEOPOROSIS
     Dosage: UNK
     Dates: start: 20140530
  17. REMIFENTANIL [Concomitant]
     Active Substance: REMIFENTANIL
     Indication: GENERAL ANAESTHESIA
     Dosage: UNK
     Dates: start: 20141124, end: 20141124
  18. SUGAMMADEX [Concomitant]
     Active Substance: SUGAMMADEX
     Indication: GENERAL ANAESTHESIA
     Dosage: UNK
     Dates: start: 20141124, end: 20141124
  19. VECURONIUM [Concomitant]
     Active Substance: VECURONIUM BROMIDE
     Indication: GENERAL ANAESTHESIA
     Dosage: UNK
     Dates: start: 20141124, end: 20141124
  20. MAXOLON [Concomitant]
     Active Substance: METOCLOPRAMIDE HYDROCHLORIDE
     Indication: GENERAL ANAESTHESIA
     Dosage: UNK
     Dates: start: 20141124, end: 20141124
  21. PARACETAMOL [Concomitant]
     Active Substance: ACETAMINOPHEN
     Indication: ANALGESIC THERAPY
     Dosage: UNK
     Dates: start: 20141124, end: 20141124
  22. PARIET [Concomitant]
     Active Substance: RABEPRAZOLE SODIUM
     Indication: PREMEDICATION
     Dosage: UNK
     Dates: start: 20141124, end: 20141124

REACTIONS (1)
  - Cholecystitis [Recovered/Resolved]

NARRATIVE: CASE EVENT DATE: 20141124
